FAERS Safety Report 4581427-4 (Version None)
Quarter: 2005Q1

REPORT INFORMATION
  Report Type: 
  Country: None (occurrence: None)
  Receive Date: 20050214
  Receipt Date: 20041021
  Transmission Date: 20050727
  Serious: No
  Sender: FDA-Public Use
  Company Number: US-GLAXOSMITHKLINE-A0530806A

PATIENT
  Age: 51 Year
  Sex: Female

DRUGS (14)
  1. LAMICTAL [Suspect]
     Indication: DEPRESSION
     Dosage: 100MG PER DAY
     Route: 048
     Dates: start: 20040801, end: 20041024
  2. LEXAPRO [Concomitant]
  3. INDERAL LA [Concomitant]
  4. KLONOPIN [Concomitant]
  5. HYDROCHLOROTHIAZIDE [Concomitant]
  6. PEPCID [Concomitant]
  7. BEXTRA [Concomitant]
  8. AMBIEN [Concomitant]
  9. SYNTHROID [Concomitant]
  10. CYTOMEL [Concomitant]
  11. LIPITOR [Concomitant]
  12. ESTRATEST [Concomitant]
  13. Z-BEC [Concomitant]
  14. ONE-A-DAY VITAMIN [Concomitant]

REACTIONS (10)
  - AGEUSIA [None]
  - ANOSMIA [None]
  - ASTHMA [None]
  - COUGH [None]
  - HEADACHE [None]
  - INFLUENZA LIKE ILLNESS [None]
  - NASAL SINUS DRAINAGE [None]
  - PHARYNGOLARYNGEAL PAIN [None]
  - URINARY TRACT INFECTION [None]
  - WHEEZING [None]
